FAERS Safety Report 7269621-5 (Version None)
Quarter: 2011Q1

REPORT INFORMATION
  Report Type: 
  Country: None (occurrence: None)
  Receive Date: 20110124
  Receipt Date: 20110108
  Transmission Date: 20110831
  Serious: Yes (Hospitalization, Other)
  Sender: FDA-Public Use
  Company Number: ACO_20782_2010

PATIENT
  Age: 63 Year
  Sex: Female

DRUGS (19)
  1. BACLOFEN [Concomitant]
  2. PRILOSEC (OMEPRAZOLE) [Concomitant]
  3. SENOKOT (SENNA ALEXANDRINA) [Concomitant]
  4. SIMVASTATIN [Concomitant]
  5. ACTOMEL [Concomitant]
  6. CALCIUM WITH VITAMIN D (CALCIUM CARBONATE, COLECALCIFEROL) [Concomitant]
  7. ZETIA [Concomitant]
  8. SINGULAIR [Concomitant]
  9. REQUIP (ROPINIROLE HYYDROCHLORIDE) [Concomitant]
  10. ASPIRIN [Concomitant]
  11. BENICAR [Concomitant]
  12. COLACE (DOCUSATE SODIUM) [Concomitant]
  13. OXYBUTYNIN [Concomitant]
  14. AMPYRA [Suspect]
     Indication: MULTIPLE SCLEROSIS
     Dosage: 10MG BID, ORAL
     Route: 048
     Dates: start: 20100501, end: 20101025
  15. CRANBERRY (VACCINIUM MACROCARPON) [Concomitant]
  16. PERI-COLACE [Concomitant]
  17. LEXAPRO [Concomitant]
  18. METAMUCIL (PLANTAGO OVATA) [Concomitant]
  19. MULTIVITAMIN [Concomitant]

REACTIONS (7)
  - ANXIETY [None]
  - DELUSION [None]
  - LYME DISEASE [None]
  - NEURITIS [None]
  - MEMORY IMPAIRMENT [None]
  - MENTAL DISORDER [None]
  - PERSONALITY CHANGE [None]
